FAERS Safety Report 8588244-9 (Version None)
Quarter: 2012Q3

REPORT INFORMATION
  Report Type: 
  Country: None (occurrence: None)
  Receive Date: 20120813
  Receipt Date: 20120802
  Transmission Date: 20120928
  Serious: Yes (Hospitalization, Other)
  Sender: FDA-Public Use
  Company Number: US-CELGENEUS-163-21880-12063137

PATIENT
  Sex: Male

DRUGS (6)
  1. REVLIMID [Suspect]
     Dosage: 25 MILLIGRAM
     Route: 048
     Dates: start: 20120201
  2. VELCADE [Concomitant]
     Route: 065
  3. ASPIRIN [Concomitant]
     Route: 065
     Dates: end: 20120626
  4. REVLIMID [Suspect]
     Indication: MULTIPLE MYELOMA
     Dosage: 25 MILLIGRAM
     Route: 048
     Dates: start: 20120116
  5. VELCADE [Concomitant]
     Route: 065
     Dates: start: 20120607
  6. DECADRON PHOSPHATE [Concomitant]
     Dosage: 5.7143 MILLIGRAM
     Route: 065

REACTIONS (4)
  - SYNCOPE [None]
  - HYPOXIA [None]
  - VENTRICULAR TACHYCARDIA [None]
  - NASOPHARYNGITIS [None]
